FAERS Safety Report 10523877 (Version 1)
Quarter: 2014Q4

REPORT INFORMATION
  Report Type: Spontaneous
  Country: US (occurrence: None)
  Receive Date: 20141015
  Receipt Date: 20141015
  Transmission Date: 20150528
  Serious: Yes (Life-Threatening, Other)
  Sender: FDA-Public Use
  Company Number: None

PATIENT
  Age: 77 Year
  Sex: Female
  Weight: 56.7 kg

DRUGS (24)
  1. ATORVASTATIN [Suspect]
     Active Substance: ATORVASTATIN
     Indication: BLOOD CHOLESTEROL
     Dosage: 40 MG 1 PILL DAILY ONE DAILY BY MOUTH
     Route: 048
     Dates: start: 201312, end: 20140118
  2. OSTEO MATRIX HAIR SKIN + NAILS [Concomitant]
  3. OCUVITE ADULT -50+ [Concomitant]
  4. CHONDROITIN SULFATE (BOVINE)\GLUCOSAMINE SULFATE [Concomitant]
     Active Substance: CHONDROITIN SULFATE (BOVINE)\GLUCOSAMINE SULFATE
  5. ALEVIATE JOINT HEALTH FORMULA [Concomitant]
  6. BENICAR [Concomitant]
     Active Substance: OLMESARTAN MEDOXOMIL
  7. VITAMIN B COMPLEX [Concomitant]
     Active Substance: CYANOCOBALAMIN\DEXPANTHENOL\NIACINAMIDE\PYRIDOXINE HYDROCHLORIDE\RIBOFLAVIN 5^-PHOSPHATE SODIUM\THIAMINE HYDROCHLORIDE\VITAMIN B COMPLEX
  8. EQUATE ARTHRITIS PAIN [Concomitant]
     Active Substance: ACETAMINOPHEN
  9. OXYBUTYNIN [Concomitant]
     Active Substance: OXYBUTYNIN
  10. QUININE SULF. [Concomitant]
  11. MELOXICAM. [Concomitant]
     Active Substance: MELOXICAM
  12. VITAMIN-D3 [Concomitant]
  13. PROBIOTIC-FORMULA [Concomitant]
  14. HORSE CHEST FOR  VC 250 [Concomitant]
  15. ATORVASTATIN [Concomitant]
     Active Substance: ATORVASTATIN
  16. WARFARIN SODIUM. [Concomitant]
     Active Substance: WARFARIN SODIUM
  17. GLA COMPLEX [Concomitant]
  18. FLEACINIDE [Concomitant]
  19. ONE A DAY 50 + [Concomitant]
  20. HERB-LAX [Concomitant]
  21. ALLEGRA ALLERGY [Concomitant]
     Active Substance: FEXOFENADINE HYDROCHLORIDE
  22. VITAMIN E [Concomitant]
     Active Substance: .ALPHA.-TOCOPHEROL
  23. VIT .C-500 MG [Concomitant]
  24. GINGER ROOT EXTRACT [Concomitant]

REACTIONS (6)
  - Tendon pain [None]
  - Ligament pain [None]
  - Myalgia [None]
  - Arthralgia [None]
  - Varicose vein [None]
  - Pain [None]

NARRATIVE: CASE EVENT DATE: 20140118
